FAERS Safety Report 23723009 (Version 2)
Quarter: 2024Q2

REPORT INFORMATION
  Report Type: Spontaneous
  Country: FR (occurrence: FR)
  Receive Date: 20240409
  Receipt Date: 20240628
  Transmission Date: 20240716
  Serious: Yes (Hospitalization)
  Sender: FDA-Public Use
  Company Number: None

PATIENT
  Age: 72 Year
  Sex: Male
  Weight: 60 kg

DRUGS (2)
  1. PACLITAXEL [Suspect]
     Active Substance: PACLITAXEL
     Indication: Pancreatic carcinoma
     Dosage: 138 MG, CYCLIC (1 INJECTION WEEKLY 3 WEEKS ON 4)
     Route: 042
     Dates: start: 20240306, end: 20240612
  2. GEMZAR [Suspect]
     Active Substance: GEMCITABINE HYDROCHLORIDE
     Indication: Pancreatic carcinoma
     Dosage: 1700 MG, CYCLIC (1 INJECTION WEEKLY 3 WEEKS ON 4)
     Route: 042
     Dates: start: 20240306, end: 20240306

REACTIONS (2)
  - Cholestatic liver injury [Recovering/Resolving]
  - Off label use [Unknown]

NARRATIVE: CASE EVENT DATE: 20240306
